FAERS Safety Report 8387514-7 (Version None)
Quarter: 2012Q2

REPORT INFORMATION
  Report Type: 
  Country: None (occurrence: None)
  Receive Date: 20120525
  Receipt Date: 20120521
  Transmission Date: 20120825
  Serious: Yes (Other)
  Sender: FDA-Public Use
  Company Number: PHEH2012US008197

PATIENT
  Sex: Male
  Weight: 87.075 kg

DRUGS (2)
  1. DIOVAN HCT [Suspect]
     Indication: HYPERTENSION
     Dosage: 1 DF (320/25 MG), QD
     Dates: start: 20071001
  2. HORMONES [Concomitant]
     Indication: PITUITARY TUMOUR
     Dosage: UNK UKN, UNK

REACTIONS (1)
  - BRAIN NEOPLASM [None]
